FAERS Safety Report 5208416-0 (Version None)
Quarter: 2006Q4

REPORT INFORMATION
  Report Type: 
  Country: None (occurrence: None)
  Receive Date: 20061026
  Receipt Date: 20060808
  Transmission Date: 20070319
  Serious: No
  Sender: FDA-Public Use
  Company Number: 2006098662

PATIENT

DRUGS (1)
  1. LYRICA [Suspect]
     Indication: DRUG USE FOR UNKNOWN INDICATION
     Dosage: 300 MG (150 MG,2 IN 1 D)

REACTIONS (2)
  - AFFECTIVE DISORDER [None]
  - FEELING ABNORMAL [None]
